FAERS Safety Report 20906969 (Version 1)
Quarter: 2022Q2

REPORT INFORMATION
  Report Type: Spontaneous
  Country: CA (occurrence: CA)
  Receive Date: 20220602
  Receipt Date: 20220602
  Transmission Date: 20220721
  Serious: Yes (Other)
  Sender: FDA-Public Use
  Company Number: CA-MODERNATX, INC.-MOD-2022-579457

PATIENT
  Age: 61 Year
  Sex: Female

DRUGS (2)
  1. MODERNA COVID-19 VACCINE [Suspect]
     Active Substance: ELASOMERAN
     Indication: Product used for unknown indication
     Dosage: 1 DOSAGE FORM
     Route: 065
  2. ENTYVIO [Suspect]
     Active Substance: VEDOLIZUMAB
     Indication: Crohn^s disease
     Dosage: 300 MILLIGRAM, 1 EVERY 4 WEEKS
     Route: 042

REACTIONS (4)
  - Alopecia [Recovered/Resolved]
  - Immunisation reaction [Recovered/Resolved]
  - Off label use [Recovered/Resolved]
  - Thrombocytopenia [Recovered/Resolved]
